FAERS Safety Report 21384942 (Version 1)
Quarter: 2022Q3

REPORT INFORMATION
  Report Type: Spontaneous
  Country: US (occurrence: US)
  Receive Date: 20220928
  Receipt Date: 20220928
  Transmission Date: 20221027
  Serious: No
  Sender: FDA-Public Use
  Company Number: US-AVEO ONCOLOGY-2022-AVEO-US000302

PATIENT

DRUGS (21)
  1. FOTIVDA [Suspect]
     Active Substance: TIVOZANIB HYDROCHLORIDE
     Indication: Renal cell carcinoma
     Dosage: 1.34 MG, DAILY FOR 21 DAYS WITH 7 DAYS OFF (28-DAY CYCLE)
     Route: 048
     Dates: start: 20220711
  2. FOTIVDA [Suspect]
     Active Substance: TIVOZANIB HYDROCHLORIDE
     Indication: Bone cancer
  3. DULCOLAX NOS [Concomitant]
     Active Substance: BISACODYL OR DOCUSATE SODIUM
  4. FENTANYL [Concomitant]
     Active Substance: FENTANYL
  5. BUDESONIDE [Concomitant]
     Active Substance: BUDESONIDE
  6. VITAMIN D3 [Concomitant]
     Active Substance: CHOLECALCIFEROL
  7. TYLENOL EXTRA STRENGTH [Concomitant]
     Active Substance: ACETAMINOPHEN
  8. SPIRIVA [Concomitant]
     Active Substance: TIOTROPIUM BROMIDE MONOHYDRATE
  9. POTASSIUM CHLORIDE [Concomitant]
     Active Substance: POTASSIUM CHLORIDE
  10. OXYCODONE [Concomitant]
     Active Substance: OXYCODONE
  11. OMEPRAZOLE [Concomitant]
     Active Substance: OMEPRAZOLE
  12. OMEGA 3 [Concomitant]
     Active Substance: CAPSAICIN
  13. VITAMINS [Concomitant]
     Active Substance: VITAMINS
  14. MONTELUKAST [Concomitant]
     Active Substance: MONTELUKAST SODIUM
  15. GUAIFENESIN [Concomitant]
     Active Substance: GUAIFENESIN
  16. GABAPENTIN [Concomitant]
     Active Substance: GABAPENTIN
  17. FUROSEMIDE [Concomitant]
     Active Substance: FUROSEMIDE
  18. FLOVENT [Concomitant]
     Active Substance: FLUTICASONE PROPIONATE
  19. Calcium 500 [Concomitant]
  20. ALBUTEROL [Concomitant]
     Active Substance: ALBUTEROL
  21. LORATADINE [Concomitant]
     Active Substance: LORATADINE

REACTIONS (3)
  - Cough [Unknown]
  - Fatigue [Unknown]
  - Lung disorder [Unknown]

NARRATIVE: CASE EVENT DATE: 20220801
